FAERS Safety Report 7044324 (Version 3)
Quarter: 2013Q2

REPORT INFORMATION
  Report Type: Report from Study
  Country: US (occurrence: US)
  Receive Date: 20090708
  Receipt Date: 20130502
  Transmission Date: 20140414
  Serious: Yes (Hospitalization)
  Sender: FDA-Public Use
  Company Number: US-JNJFOC-20090700242

PATIENT
  Age: 13 Year
  Sex: Male
  Weight: 41.8 kg

DRUGS (6)
  1. INFLIXIMAB [Suspect]
     Indication: INFLAMMATORY BOWEL DISEASE
     Dosage: BOLUS DURING HOSPITALIZATION
     Route: 042
     Dates: start: 20081112
  2. INFLIXIMAB [Suspect]
     Indication: INFLAMMATORY BOWEL DISEASE
     Route: 042
     Dates: start: 20081010
  3. INFLIXIMAB [Suspect]
     Indication: INFLAMMATORY BOWEL DISEASE
     Route: 042
     Dates: start: 20080912
  4. INFLIXIMAB [Suspect]
     Indication: INFLAMMATORY BOWEL DISEASE
     Dosage: PRIOR TO STUDY ENROLLMENT
     Route: 042
     Dates: start: 20080830
  5. ANTIHISTAMINES [Concomitant]
     Indication: PREMEDICATION
  6. PREDNISONE [Concomitant]
     Route: 065

REACTIONS (1)
  - Thrombosis [Recovered/Resolved with Sequelae]
